FAERS Safety Report 19791161 (Version 1)
Quarter: 2021Q3

REPORT INFORMATION
  Report Type: Spontaneous
  Country: US (occurrence: US)
  Receive Date: 20210906
  Receipt Date: 20210906
  Transmission Date: 20211014
  Serious: Yes (Hospitalization, Other)
  Sender: FDA-Public Use
  Company Number: US-MACLEODS PHARMACEUTICALS US LTD-MAC2021032561

PATIENT

DRUGS (2)
  1. TRIAMCINOLONE [Suspect]
     Active Substance: TRIAMCINOLONE
     Indication: MACULOPATHY
     Dosage: 4 MILLIGRAM, INTRAVITREAL EVERY 3?4 MONTHS, INJECTION
     Route: 031
  2. TRIAMCINOLONE [Suspect]
     Active Substance: TRIAMCINOLONE
     Indication: RETINAL NEOVASCULARISATION

REACTIONS (2)
  - Glaucoma [Recovering/Resolving]
  - Cataract [Recovering/Resolving]
